FAERS Safety Report 10209438 (Version 2)
Quarter: 2014Q2

REPORT INFORMATION
  Report Type: Spontaneous
  Country: GB (occurrence: GB)
  Receive Date: 20140601
  Receipt Date: 20140624
  Transmission Date: 20141212
  Serious: Yes (Hospitalization)
  Sender: FDA-Public Use
  Company Number: PHFR2014GB003810

PATIENT
  Age: 64 Year
  Sex: Male

DRUGS (8)
  1. CLOZARIL [Suspect]
     Indication: SCHIZOPHRENIA
     Dosage: UNK
     Dates: start: 20101101, end: 20110929
  2. CLOZARIL [Suspect]
     Dosage: UNK
     Route: 048
     Dates: start: 20120807
  3. CLOZARIL [Suspect]
     Dosage: 250 MG DAILY
     Route: 048
     Dates: end: 20140606
  4. TAMSULOSIN [Concomitant]
     Dosage: 400 MG, DAILY
     Route: 048
  5. CHOLECALCIFEROL [Concomitant]
     Dosage: 200 MG, UNK
     Route: 048
  6. OMEPRAZOLE [Concomitant]
     Dosage: 10 MG, DAILY
     Route: 048
  7. SIMVASTATIN [Concomitant]
     Dosage: 80 MG, DAILY
     Route: 048
  8. PARACETAMOL [Concomitant]
     Dosage: 4 G, DAILY
     Route: 048

REACTIONS (8)
  - Gastrointestinal carcinoma [Unknown]
  - Terminal state [Unknown]
  - Metastases to lung [Unknown]
  - Coagulopathy [Unknown]
  - Metastases to central nervous system [Unknown]
  - Generalised tonic-clonic seizure [Recovering/Resolving]
  - White blood cell count increased [Unknown]
  - Neutrophil count increased [Unknown]
